FAERS Safety Report 5840425-0 (Version None)
Quarter: 2008Q3

REPORT INFORMATION
  Report Type: 
  Country: None (occurrence: None)
  Receive Date: 20080807
  Receipt Date: 20080807
  Transmission Date: 20090109
  Serious: Yes (Hospitalization)
  Sender: FDA-Public Use
  Company Number: None

PATIENT
  Sex: Female
  Weight: 62.05 kg

DRUGS (2)
  1. CISPLATIN [Suspect]
     Dosage: 92 MG
     Dates: end: 20080723
  2. TAXOTERE [Suspect]
     Dosage: 123 MG
     Dates: end: 20080723

REACTIONS (4)
  - DIARRHOEA [None]
  - HYPONATRAEMIA [None]
  - HYPOPHAGIA [None]
  - HYPOTENSION [None]
